FAERS Safety Report 13465565 (Version 2)
Quarter: 2017Q2

REPORT INFORMATION
  Report Type: Spontaneous
  Country: US (occurrence: US)
  Receive Date: 20170421
  Receipt Date: 20170510
  Transmission Date: 20170830
  Serious: Yes (Hospitalization, Other)
  Sender: FDA-Public Use
  Company Number: US-JNJFOC-20170416969

PATIENT
  Sex: Female

DRUGS (2)
  1. TOPAMAX [Suspect]
     Active Substance: TOPIRAMATE
     Indication: ARNOLD-CHIARI MALFORMATION
     Route: 048
     Dates: end: 201703
  2. TOPAMAX [Suspect]
     Active Substance: TOPIRAMATE
     Indication: SYRINGOMYELIA
     Route: 048
     Dates: end: 201703

REACTIONS (13)
  - Balance disorder [Unknown]
  - Irritability [Unknown]
  - Photophobia [Unknown]
  - Hospitalisation [Unknown]
  - Dysphonia [Unknown]
  - Gait disturbance [Unknown]
  - Disturbance in attention [Unknown]
  - Off label use [Unknown]
  - Pain [Unknown]
  - Surgery [Unknown]
  - Dysphemia [Unknown]
  - Memory impairment [Unknown]
  - Product use in unapproved indication [Unknown]
